FAERS Safety Report 14341302 (Version 5)
Quarter: 2020Q3

REPORT INFORMATION
  Report Type: Report from Study
  Country: US (occurrence: US)
  Receive Date: 20180102
  Receipt Date: 20180423
  Transmission Date: 20201105
  Serious: Yes (Other)
  Sender: FDA-Public Use
  Company Number: US-ASTRAZENECA-2017SE26558

PATIENT
  Age: 82 Year
  Sex: Male
  Weight: 83.7 kg

DRUGS (17)
  1. TREMELIMUMAB. [Suspect]
     Active Substance: TREMELIMUMAB
     Indication: NEOPLASM MALIGNANT
     Dosage: 1 MG/KG EVERY FOUR WEEKS
     Route: 042
     Dates: start: 20160629
  2. SINGULAIR [Concomitant]
     Active Substance: MONTELUKAST SODIUM
     Indication: ASTHMA
     Route: 048
     Dates: start: 20000801
  3. BACITRACIN. [Concomitant]
     Active Substance: BACITRACIN
     Indication: SKIN INFECTION
     Dosage: 1 APPLICATION TWICE DAILY
     Route: 061
     Dates: start: 201605
  4. FLONASE [Concomitant]
     Active Substance: FLUTICASONE PROPIONATE
     Indication: NASAL CONGESTION
     Dosage: 50.0UG AS REQUIRED
     Route: 045
     Dates: start: 20000801
  5. BROMFENAC [Concomitant]
     Active Substance: BROMFENAC SODIUM
     Indication: GLAUCOMA
     Route: 047
     Dates: start: 20140101
  6. SYNTHROID [Concomitant]
     Active Substance: LEVOTHYROXINE SODIUM
     Indication: HYPOTHYROIDISM
     Route: 048
     Dates: start: 20000801
  7. CLARITIN [Concomitant]
     Active Substance: LORATADINE
     Indication: PRURITUS
     Dosage: 10 MG/DL AS REQUIRED
     Route: 048
     Dates: start: 201607
  8. ADVIL [Concomitant]
     Active Substance: IBUPROFEN
     Indication: BACK PAIN
     Dosage: 200.0MG AS REQUIRED
     Route: 048
     Dates: start: 20170304, end: 20170323
  9. ADVAIR DISKUS [Concomitant]
     Active Substance: FLUTICASONE PROPIONATE\SALMETEROL XINAFOATE
     Indication: ASTHMA
     Route: 055
     Dates: start: 20000801
  10. DIPHENHYDRAMINE. [Concomitant]
     Active Substance: DIPHENHYDRAMINE
     Indication: PRURITUS
     Dosage: 25.0MG AS REQUIRED
     Route: 048
     Dates: start: 201607
  11. MEDI4736 [Suspect]
     Active Substance: DURVALUMAB
     Indication: NEOPLASM MALIGNANT
     Dosage: 10 MG/KG EVERY TWO WEEKS
     Route: 042
  12. ADVIL [Concomitant]
     Active Substance: IBUPROFEN
     Indication: BACK PAIN
     Dosage: 200.0MG AS REQUIRED
     Route: 048
     Dates: start: 20161109, end: 20170304
  13. MEDI4736 [Suspect]
     Active Substance: DURVALUMAB
     Indication: NEOPLASM MALIGNANT
     Dosage: 10 MG/KG EVERY TWO WEEKS
     Route: 042
     Dates: start: 20160629
  14. COSOPT [Concomitant]
     Active Substance: DORZOLAMIDE HYDROCHLORIDE\TIMOLOL MALEATE
     Indication: GLAUCOMA
     Dosage: 22.3MG/ML ONCE/SINGLE ADMINISTRATION
     Route: 047
     Dates: start: 20140101
  15. NEXIUM [Concomitant]
     Active Substance: ESOMEPRAZOLE MAGNESIUM
     Indication: DYSPEPSIA
     Route: 048
     Dates: start: 20151106
  16. PREDNISOLONE ACETATE. [Concomitant]
     Active Substance: PREDNISOLONE ACETATE
     Indication: GLAUCOMA
     Dosage: 1 DROP DAILY
     Route: 047
     Dates: start: 20140101
  17. METFORMIN [Concomitant]
     Active Substance: METFORMIN HYDROCHLORIDE
     Indication: DIABETES MELLITUS
     Route: 048
     Dates: start: 20000201

REACTIONS (1)
  - Lipase increased [Recovered/Resolved]

NARRATIVE: CASE EVENT DATE: 20170308
